FAERS Safety Report 6394183-4 (Version None)
Quarter: 2009Q4

REPORT INFORMATION
  Report Type: 
  Country: None (occurrence: None)
  Receive Date: 20091008
  Receipt Date: 20090930
  Transmission Date: 20100525
  Serious: Yes (Other)
  Sender: FDA-Public Use
  Company Number: PHHY2009MX38993

PATIENT
  Sex: Female

DRUGS (4)
  1. TEGRETOL [Suspect]
     Indication: EPILEPSY
     Dosage: 200 MG
     Route: 048
     Dates: start: 20090908
  2. TEGRETOL [Suspect]
     Dosage: 2.5 TABLETS (400MG) PER DAY
     Dates: start: 20080301
  3. TEGRETOL [Suspect]
     Dosage: 3 TABLETS (400MG) PER DAY
     Dates: start: 20090908
  4. CARBAMAZEPINE [Suspect]

REACTIONS (5)
  - INCORRECT DOSE ADMINISTERED [None]
  - MOVEMENT DISORDER [None]
  - PARALYSIS [None]
  - SOMNOLENCE [None]
  - SYNCOPE [None]
